FAERS Safety Report 6075315-4 (Version None)
Quarter: 2009Q1

REPORT INFORMATION
  Report Type: 
  Country: None (occurrence: None)
  Receive Date: 20090212
  Receipt Date: 20090209
  Transmission Date: 20090719
  Serious: Yes (Death)
  Sender: FDA-Public Use
  Company Number: JP-NOVOPROD-283973

PATIENT
  Age: 81 Year
  Sex: Male
  Weight: 55 kg

DRUGS (1)
  1. NOVOSEVEN [Suspect]
     Indication: ACQUIRED HAEMOPHILIA
     Dosage: 4.8 MG X 6 INJECTIONS
     Route: 042
     Dates: start: 20090124, end: 20090124

REACTIONS (1)
  - PULMONARY HAEMORRHAGE [None]
